FAERS Safety Report 19177887 (Version 1)
Quarter: 2021Q2

REPORT INFORMATION
  Report Type: Spontaneous
  Country: IT (occurrence: IT)
  Receive Date: 20210426
  Receipt Date: 20210426
  Transmission Date: 20210717
  Serious: Yes (Other)
  Sender: FDA-Public Use
  Company Number: IT-JNJFOC-20210438746

PATIENT
  Age: 64 Year
  Sex: Male
  Weight: 93 kg

DRUGS (1)
  1. STELARA [Suspect]
     Active Substance: USTEKINUMAB
     Indication: PSORIASIS
     Dosage: ; CYCLICAL
     Route: 058
     Dates: start: 20160615, end: 20201212

REACTIONS (2)
  - Colon adenoma [Unknown]
  - Colon dysplasia [Unknown]

NARRATIVE: CASE EVENT DATE: 20201212
